FAERS Safety Report 7092250-3 (Version None)
Quarter: 2010Q4

REPORT INFORMATION
  Report Type: 
  Country: None (occurrence: None)
  Receive Date: 20101109
  Receipt Date: 20101102
  Transmission Date: 20110411
  Serious: Yes (Hospitalization)
  Sender: FDA-Public Use
  Company Number: RU-AMGEN-RUSCT2010003148

PATIENT

DRUGS (2)
  1. DENOSUMAB [Suspect]
     Indication: METASTASES TO BONE
     Dosage: 1.7 UNK, Q4WK
     Route: 058
     Dates: start: 20090728, end: 20101007
  2. PACLITAXEL [Concomitant]
     Dosage: UNK
     Dates: start: 20100826, end: 20101007

REACTIONS (1)
  - OSTEOMYELITIS ACUTE [None]
